FAERS Safety Report 10062496 (Version 1)
Quarter: 2014Q2

REPORT INFORMATION
  Report Type: Spontaneous
  Country: US (occurrence: US)
  Receive Date: 20140407
  Receipt Date: 20140407
  Transmission Date: 20141212
  Serious: Yes (Other)
  Sender: FDA-Public Use
  Company Number: US-PFIZER INC-2014094230

PATIENT
  Age: 66 Year
  Sex: Male
  Weight: 90.7 kg

DRUGS (3)
  1. ARTHROTEC [Suspect]
     Indication: SPONDYLITIS
     Dosage: UNK
  2. LOSARTAN [Concomitant]
     Indication: HYPERTENSION
     Dosage: 12.5 MG, DAILY
  3. AMLODIPINE BESYLATE [Concomitant]
     Indication: HYPERTENSION
     Dosage: 5 MG, DAILY

REACTIONS (2)
  - Fall [Unknown]
  - Lower limb fracture [Recovering/Resolving]
